FAERS Safety Report 8029612-3 (Version None)
Quarter: 2012Q1

REPORT INFORMATION
  Report Type: 
  Country: None (occurrence: None)
  Receive Date: 20120109
  Receipt Date: 20120104
  Transmission Date: 20120608
  Serious: No
  Sender: FDA-Public Use
  Company Number: US-PFIZER INC-2012002955

PATIENT
  Sex: Female
  Weight: 65.8 kg

DRUGS (4)
  1. NABUMETONE [Concomitant]
     Indication: ARTHRITIS
     Dosage: 500 MG, 2X/DAY
  2. PREMARIN [Suspect]
     Dosage: UNK
     Route: 048
  3. PREMARIN [Suspect]
     Indication: HYSTERECTOMY
     Dosage: 25 MG, DAILY
     Route: 048
  4. ATENOLOL [Concomitant]
     Indication: CARDIAC DISORDER
     Dosage: 25 MG, DAILY

REACTIONS (1)
  - THYROID DISORDER [None]
